FAERS Safety Report 7198162-9 (Version None)
Quarter: 2010Q4

REPORT INFORMATION
  Report Type: 
  Country: None (occurrence: None)
  Receive Date: 20101227
  Receipt Date: 20101213
  Transmission Date: 20110411
  Serious: Yes (Other)
  Sender: FDA-Public Use
  Company Number: PHHY2010DE87469

PATIENT
  Age: 67 Year
  Sex: Male

DRUGS (2)
  1. ZOMETA [Suspect]
     Indication: PROSTATE CANCER
     Route: 042
  2. CHEMOTHERAPEUTICS NOS [Concomitant]

REACTIONS (5)
  - ABSCESS [None]
  - IMPAIRED HEALING [None]
  - OSTEOMYELITIS [None]
  - SEQUESTRECTOMY [None]
  - TOOTH EXTRACTION [None]
